FAERS Safety Report 4523350-7 (Version None)
Quarter: 2004Q4

REPORT INFORMATION
  Report Type: 
  Country: None (occurrence: None)
  Receive Date: 20041209
  Receipt Date: 20041209
  Transmission Date: 20050328
  Serious: Yes (Other)
  Sender: FDA-Public Use
  Company Number: None

PATIENT
  Age: 67 Year
  Sex: Male

DRUGS (6)
  1. GATIFLOXACIN [Suspect]
     Indication: INFECTION
     Dosage: 400MG  QD  ORAL
     Route: 048
     Dates: start: 20040305, end: 20040306
  2. WARFARIN SODIUM [Concomitant]
  3. METFORMIN HCL EXTENDED RELEASE [Concomitant]
  4. SIMVASTATIN [Concomitant]
  5. FUROSEMIDE [Concomitant]
  6. GLIPIZIDE [Concomitant]

REACTIONS (1)
  - HYPOGLYCAEMIA [None]
